FAERS Safety Report 4948609-0 (Version None)
Quarter: 2006Q1

REPORT INFORMATION
  Report Type: 
  Country: None (occurrence: None)
  Receive Date: 20060320
  Receipt Date: 20051005
  Transmission Date: 20060701
  Serious: Yes (Hospitalization, Disabling)
  Sender: FDA-Public Use
  Company Number: US-MERCK-0510USA04521

PATIENT
  Age: 40 Year
  Sex: Female
  Weight: 110 kg

DRUGS (3)
  1. VIOXX [Suspect]
     Indication: PAIN
     Route: 048
     Dates: start: 20020101, end: 20040101
  2. PREDNISONE [Concomitant]
     Route: 065
  3. CELLCEPT [Concomitant]
     Route: 065

REACTIONS (13)
  - CARDIOVASCULAR DISORDER [None]
  - CORONARY ARTERY DISEASE [None]
  - DIABETES MELLITUS [None]
  - DIABETIC KETOACIDOSIS [None]
  - HAEMORRHOIDS [None]
  - HYPERTENSION [None]
  - HYPOKALAEMIA [None]
  - MUSCULOSKELETAL CHEST PAIN [None]
  - MYOCARDIAL INFARCTION [None]
  - PRESCRIBED OVERDOSE [None]
  - RENAL FAILURE [None]
  - UPPER RESPIRATORY TRACT INFECTION [None]
  - WEIGHT DECREASED [None]
